FAERS Safety Report 5958902-0 (Version None)
Quarter: 2008Q4

REPORT INFORMATION
  Report Type: 
  Country: None (occurrence: None)
  Receive Date: 20081118
  Receipt Date: 20081111
  Transmission Date: 20090506
  Serious: Yes (Hospitalization)
  Sender: FDA-Public Use
  Company Number: DSA_32653_2008

PATIENT
  Sex: Female

DRUGS (4)
  1. CARDIZEM CD [Suspect]
     Indication: DRUG USE FOR UNKNOWN INDICATION
     Dosage: 360 MG QD
     Dates: end: 20080101
  2. COUMADIN /00014802/ (UNKNOWN) [Concomitant]
  3. VYTORIN [Concomitant]
  4. OMEPRAZOLE (UNKNOWN) [Concomitant]

REACTIONS (4)
  - ECONOMIC PROBLEM [None]
  - ORTHOSTATIC HYPOTENSION [None]
  - SYNCOPE [None]
  - TREATMENT NONCOMPLIANCE [None]
